FAERS Safety Report 8585531-5 (Version None)
Quarter: 2012Q3

REPORT INFORMATION
  Report Type: 
  Country: None (occurrence: None)
  Receive Date: 20120810
  Receipt Date: 20120803
  Transmission Date: 20120928
  Serious: Yes (Hospitalization, Disabling, Other)
  Sender: FDA-Public Use
  Company Number: VE-ELI_LILLY_AND_COMPANY-VE201206007323

PATIENT
  Sex: Male

DRUGS (3)
  1. HUMALOG MIX 75/25 [Suspect]
     Dosage: 20 U, EACH EVENING
  2. HUMALOG [Suspect]
     Dosage: 10 U, QD
  3. HUMALOG MIX 75/25 [Suspect]
     Dosage: 55 U, EACH MORNING

REACTIONS (5)
  - FATIGUE [None]
  - DEPRESSED MOOD [None]
  - HYPOGLYCAEMIC UNCONSCIOUSNESS [None]
  - ABASIA [None]
  - ULCER [None]
